FAERS Safety Report 25613365 (Version 1)
Quarter: 2025Q3

REPORT INFORMATION
  Report Type: Spontaneous
  Country: US (occurrence: None)
  Receive Date: 20250727
  Receipt Date: 20250727
  Transmission Date: 20251020
  Serious: No
  Sender: FDA-CTU
  Company Number: None

PATIENT
  Age: 64 Year
  Sex: Female
  Weight: 78.75 kg

DRUGS (17)
  1. TYRVAYA [Suspect]
     Active Substance: VARENICLINE TARTRATE
     Indication: Dry eye
     Dosage: OTHER QUANTITY : 1 SPRAY(S);?FREQUENCY : TWICE A DAY;?OTHER ROUTE : SPRAY LATERAL WALL OF EACH NOSTRILS;?
     Route: 050
     Dates: start: 20250716, end: 20250719
  2. XIIDRA [Concomitant]
     Active Substance: LIFITEGRAST
  3. PATADAY [Concomitant]
     Active Substance: OLOPATADINE HYDROCHLORIDE
  4. Pericolace [Concomitant]
  5. COLACE [Concomitant]
     Active Substance: DOCUSATE SODIUM
  6. ALOE [Concomitant]
     Active Substance: ALOE
  7. VITAMIN C [Concomitant]
     Active Substance: ASCORBIC ACID
  8. VITAMIN D [Concomitant]
     Active Substance: VITAMIN D NOS
  9. Magnesium Citriate [Concomitant]
  10. FISH OIL\OMEGA-3 FATTY ACIDS [Concomitant]
     Active Substance: FISH OIL\OMEGA-3 FATTY ACIDS
  11. RUTIN [Concomitant]
     Active Substance: RUTIN
  12. MELATONIN [Concomitant]
     Active Substance: MELATONIN
  13. VALERIAN [Concomitant]
     Active Substance: VALERIAN
  14. SCULLCAP [Concomitant]
     Active Substance: SCUTELLARIA LATERIFLORA
  15. PASSION FLOWER [Concomitant]
     Active Substance: HERBALS\HOMEOPATHICS\PASSIFLORA INCARNATA FLOWER
  16. Hope Flower [Concomitant]
  17. Standard Process Vitanox [Concomitant]

REACTIONS (6)
  - Sneezing [None]
  - Headache [None]
  - Eye pain [None]
  - Eye pain [None]
  - Rhinalgia [None]
  - Facial pain [None]

NARRATIVE: CASE EVENT DATE: 20250719
